FAERS Safety Report 5481144-2 (Version None)
Quarter: 2007Q4

REPORT INFORMATION
  Report Type: 
  Country: None (occurrence: None)
  Receive Date: 20071004
  Receipt Date: 20070924
  Transmission Date: 20080405
  Serious: Yes (Other)
  Sender: FDA-Public Use
  Company Number: 07H-163-0313251-00

PATIENT
  Age: 47 Year
  Sex: Female

DRUGS (2)
  1. CLINDAMYCIN INJECTION (CLINDAMYCIN PHOSPHATE INJECTION, USP, 150MG/ML) [Suspect]
     Indication: ANTIBIOTIC PROPHYLAXIS
     Dosage: 900 MG, 8 HR, INTRAVENOUS
     Route: 042
  2. CLINDAMYCIN (CLINDAMYCIN) [Suspect]
     Indication: TOOTH INFECTION
     Dosage: 300 MG, 6 HR, ORAL
     Route: 048

REACTIONS (3)
  - ACUTE FEBRILE NEUTROPHILIC DERMATOSIS [None]
  - PHARYNGEAL MASS [None]
  - TOOTH ABSCESS [None]
